FAERS Safety Report 20789510 (Version 1)
Quarter: 2022Q2

REPORT INFORMATION
  Report Type: Spontaneous
  Country: US (occurrence: None)
  Receive Date: 20220504
  Receipt Date: 20220504
  Transmission Date: 20220721
  Serious: Yes (Life-Threatening)
  Sender: FDA-Public Use
  Company Number: None

PATIENT
  Sex: Female
  Weight: 74.84 kg

DRUGS (1)
  1. PAXLOVID [Suspect]
     Active Substance: NIRMATRELVIR\RITONAVIR
     Indication: COVID-19

REACTIONS (8)
  - Dyspnoea [None]
  - Pyrexia [None]
  - Cough [None]
  - Hypoxia [None]
  - Polymerase chain reaction positive [None]
  - Symptom recurrence [None]
  - Pneumonia [None]
  - COVID-19 [None]
